FAERS Safety Report 4984974-6 (Version None)
Quarter: 2006Q2

REPORT INFORMATION
  Report Type: 
  Country: None (occurrence: None)
  Receive Date: 20060426
  Receipt Date: 20060426
  Transmission Date: 20061013
  Serious: Yes (Life-Threatening)
  Sender: FDA-Public Use
  Company Number: None

PATIENT
  Age: 78 Year
  Sex: Female
  Weight: 77.1 kg

DRUGS (1)
  1. CETACAINE [Suspect]
     Indication: ECHOCARDIOGRAM
     Dosage: SPRAY  ONCE  TOPICAL
     Route: 061
     Dates: start: 20051222

REACTIONS (2)
  - METHAEMOGLOBINAEMIA [None]
  - POST PROCEDURAL COMPLICATION [None]
